FAERS Safety Report 10367463 (Version 3)
Quarter: 2014Q3

REPORT INFORMATION
  Report Type: Report from Study
  Country: CA (occurrence: CA)
  Receive Date: 20140807
  Receipt Date: 20140821
  Transmission Date: 20150326
  Serious: No
  Sender: FDA-Public Use
  Company Number: PHHY2013CA036324

PATIENT
  Age: 46 Year
  Sex: Male

DRUGS (1)
  1. TASIGNA [Suspect]
     Active Substance: NILOTINIB
     Indication: CHRONIC MYELOID LEUKAEMIA
     Dosage: 400 MG, BID
     Route: 048
     Dates: start: 20130325

REACTIONS (6)
  - Rash [Unknown]
  - Acne [Not Recovered/Not Resolved]
  - Palpitations [Unknown]
  - Weight decreased [Unknown]
  - Skin discolouration [Unknown]
  - Food interaction [Unknown]

NARRATIVE: CASE EVENT DATE: 20130506
